FAERS Safety Report 10085632 (Version 2)
Quarter: 2014Q2

REPORT INFORMATION
  Report Type: Spontaneous
  Country: US (occurrence: None)
  Receive Date: 20140416
  Receipt Date: 20140424
  Transmission Date: 20141212
  Serious: Yes (Hospitalization, Other)
  Sender: FDA-Public Use
  Company Number: AXC-2014-000253

PATIENT
  Age: 54 Year
  Sex: Female
  Weight: 73.9 kg

DRUGS (18)
  1. ZENPEP [Suspect]
     Indication: PANCREATIC INSUFFICIENCY
     Dosage: WITH EACH MEAL,
     Route: 048
     Dates: start: 2012
  2. ELAVIL AMITRIPTYLINE (AMITRIPTYLINE) [Concomitant]
  3. L-METHYLFOLATE CALCIUM (CALCIUM MEFOLINATE) [Concomitant]
  4. POTASSIUM CITRATE (POTASSIUM CITRATE) [Concomitant]
  5. VITAMIN D 2 (ERGOCALCIFEROL) [Concomitant]
  6. SIMETHICONE (SIMETICONE) [Concomitant]
  7. HYDROCODONE/APAP (HYDROCODONE BITARTRATE, PARACETAMOL) [Concomitant]
  8. NITROGLYCERIN (GLYCERYL TRINITRATE) SPRAY [Concomitant]
  9. CIMETIDINE (CIMETIDINE) (CIMETIDINE) [Concomitant]
  10. VITAMIN D3 (COLECALCIFEROL) [Concomitant]
  11. LASIX [Concomitant]
  12. AMBIEN (ZOLPIDEM TARTRATE) [Concomitant]
  13. CLONIDINE (CLONIDINE) [Concomitant]
  14. VIBRYD (VILAZODONE HYDROCHLORIDE) [Concomitant]
  15. MULTIVITAMIN [Concomitant]
  16. B12 [Concomitant]
  17. TENORMIN [Concomitant]
  18. CLONIDINE [Concomitant]

REACTIONS (13)
  - Hypertension [None]
  - Abdominal pain [None]
  - Abdominal distension [None]
  - Weight increased [None]
  - Nausea [None]
  - Anal pruritus [None]
  - Eczema [None]
  - Rash generalised [None]
  - Gastrointestinal disorder [None]
  - Dyspnoea [None]
  - Chest pain [None]
  - Lymphoedema [None]
  - Back pain [None]
